FAERS Safety Report 20483740 (Version 2)
Quarter: 2022Q1

REPORT INFORMATION
  Report Type: Other
  Country: US (occurrence: None)
  Receive Date: 20220217
  Receipt Date: 20220225
  Transmission Date: 20220423
  Serious: Yes (Other)
  Sender: FDA-Public Use
  Company Number: US-ROCHE-3025041

PATIENT
  Sex: Female
  Weight: 113.50 kg

DRUGS (14)
  1. XOLAIR [Suspect]
     Active Substance: OMALIZUMAB
     Indication: Urticaria
     Dosage: 1 SHOT IN EACH ARM MONTHLY
     Route: 058
     Dates: start: 2017
  2. XOLAIR [Suspect]
     Active Substance: OMALIZUMAB
  3. XOLAIR [Suspect]
     Active Substance: OMALIZUMAB
  4. TRIAMCINOLONE [Concomitant]
     Active Substance: TRIAMCINOLONE
  5. PREDNISONE [Concomitant]
     Active Substance: PREDNISONE
  6. CARVEDILOL [Concomitant]
     Active Substance: CARVEDILOL
  7. SERTRALINE [Concomitant]
     Active Substance: SERTRALINE HYDROCHLORIDE
  8. LOSARTAN [Concomitant]
     Active Substance: LOSARTAN
  9. GABAPENTIN [Concomitant]
     Active Substance: GABAPENTIN
  10. HYDROCHLOROTHIAZIDE [Concomitant]
     Active Substance: HYDROCHLOROTHIAZIDE
  11. LEVOTHYROXINE [Concomitant]
     Active Substance: LEVOTHYROXINE
  12. BACLOFEN [Concomitant]
     Active Substance: BACLOFEN
  13. ZYRTEC (UNITED STATES) [Concomitant]
  14. EPIPEN [Concomitant]
     Active Substance: EPINEPHRINE

REACTIONS (2)
  - Cardiac failure [Recovered/Resolved]
  - Thyroid disorder [Recovered/Resolved]

NARRATIVE: CASE EVENT DATE: 20200101
